FAERS Safety Report 12196706 (Version 1)
Quarter: 2016Q1

REPORT INFORMATION
  Report Type: Spontaneous
  Country: US (occurrence: US)
  Receive Date: 20160321
  Receipt Date: 20160321
  Transmission Date: 20160526
  Serious: Yes (Other)
  Sender: FDA-Public Use
  Company Number: US-MDT-ADR-2016-00414

PATIENT
  Age: 38 Year
  Sex: Male

DRUGS (13)
  1. KEPPRA [Suspect]
     Active Substance: LEVETIRACETAM
     Route: 048
  2. MIRALAX [Suspect]
     Active Substance: POLYETHYLENE GLYCOL 3350
     Route: 048
  3. ALBUTEROL SULFATE. [Suspect]
     Active Substance: ALBUTEROL SULFATE
     Indication: DYSPNOEA
     Dosage: 2.5MG/0.5 ML
     Route: 055
  4. COMPOUNDED BACLOFEN [Suspect]
     Active Substance: BACLOFEN
     Dosage: 1402.8
     Route: 037
     Dates: start: 2013
  5. ASPIRIN. [Suspect]
     Active Substance: ASPIRIN
     Route: 048
  6. BENEFIBER [Suspect]
     Active Substance: STARCH, WHEAT
     Route: 048
  7. POTASSIUM CHLORIDE. [Suspect]
     Active Substance: POTASSIUM CHLORIDE
     Route: 048
  8. SYNTHROID [Suspect]
     Active Substance: LEVOTHYROXINE SODIUM
     Route: 048
  9. MULTIVITAMIN [Suspect]
     Active Substance: VITAMINS
     Route: 048
  10. COLACE [Suspect]
     Active Substance: DOCUSATE SODIUM
     Route: 048
  11. PREVACID [Suspect]
     Active Substance: LANSOPRAZOLE
     Route: 048
  12. VIMPAT [Suspect]
     Active Substance: LACOSAMIDE
     Route: 048
  13. LORATADINE. [Suspect]
     Active Substance: LORATADINE
     Route: 048

REACTIONS (2)
  - Urinary tract infection [Unknown]
  - Muscle spasticity [Recovered/Resolved]

NARRATIVE: CASE EVENT DATE: 201505
